FAERS Safety Report 6432991-1 (Version None)
Quarter: 2009Q4

REPORT INFORMATION
  Report Type: 
  Country: None (occurrence: None)
  Receive Date: 20091109
  Receipt Date: 20091102
  Transmission Date: 20100525
  Serious: Yes (Other)
  Sender: FDA-Public Use
  Company Number: ES-ASTRAZENECA-2009SE24133

PATIENT
  Age: 61 Year
  Sex: Female

DRUGS (3)
  1. NEXIUM [Suspect]
     Indication: HIATUS HERNIA
     Route: 048
     Dates: start: 20090307, end: 20090314
  2. LORAZEPAM CINFA [Concomitant]
     Route: 048
     Dates: start: 20090108
  3. STILNOX [Concomitant]
     Route: 048
     Dates: start: 20071102

REACTIONS (6)
  - ABDOMINAL PAIN [None]
  - FACE OEDEMA [None]
  - FEELING OF BODY TEMPERATURE CHANGE [None]
  - HEADACHE [None]
  - INSOMNIA [None]
  - PRURITUS [None]
